FAERS Safety Report 23648841 (Version 1)
Quarter: 2024Q1

REPORT INFORMATION
  Report Type: Spontaneous
  Country: US (occurrence: None)
  Receive Date: 20240318
  Receipt Date: 20240318
  Transmission Date: 20240410
  Serious: Yes (Hospitalization)
  Sender: FDA-Public Use
  Company Number: None

PATIENT
  Age: 45 Year
  Sex: Female
  Weight: 94.05 kg

DRUGS (11)
  1. ZEPBOUND [Suspect]
     Active Substance: TIRZEPATIDE
     Indication: Obesity
     Dosage: OTHER QUANTITY : 1 INJECTION(S);?FREQUENCY : WEEKLY;?
     Route: 058
     Dates: start: 20240225, end: 20240309
  2. GABAPENTIN [Concomitant]
     Active Substance: GABAPENTIN
  3. LISINOPRIL [Concomitant]
     Active Substance: LISINOPRIL
  4. HYDROCHLOROTHIAZIDE [Concomitant]
     Active Substance: HYDROCHLOROTHIAZIDE
  5. SERTRALINE [Concomitant]
     Active Substance: SERTRALINE HYDROCHLORIDE
  6. NURTEC ODT [Concomitant]
     Active Substance: RIMEGEPANT SULFATE
  7. ZOMIG [Concomitant]
     Active Substance: ZOLMITRIPTAN
  8. VITAMIN D [Concomitant]
     Active Substance: VITAMIN D NOS
  9. MAGNESIUM [Concomitant]
     Active Substance: MAGNESIUM
  10. PROBIOTICS NOS [Concomitant]
     Active Substance: PROBIOTICS NOS
  11. VITAMIN B COMPLEX [Concomitant]
     Active Substance: CYANOCOBALAMIN\DEXPANTHENOL\NIACINAMIDE\PYRIDOXINE HYDROCHLORIDE\RIBOFLAVIN 5^-PHOSPHATE SODIUM\THIA

REACTIONS (1)
  - Cholecystitis [None]

NARRATIVE: CASE EVENT DATE: 20240313
